FAERS Safety Report 24276988 (Version 2)
Quarter: 2024Q3

REPORT INFORMATION
  Report Type: Report from Study
  Country: NL (occurrence: NL)
  Receive Date: 20240903
  Receipt Date: 20240906
  Transmission Date: 20241017
  Serious: Yes (Other)
  Sender: MYLAN
  Company Number: NL-MYLANLABS-2024M1079776

PATIENT
  Sex: Female

DRUGS (1)
  1. GLATIRAMER ACETATE [Suspect]
     Active Substance: GLATIRAMER ACETATE
     Indication: Multiple sclerosis
     Dosage: UNK 40MG/ML 3XW (3.00 X PER WEEK)
     Route: 058
     Dates: start: 201910, end: 20240903

REACTIONS (1)
  - Multiple sclerosis [Not Recovered/Not Resolved]
